FAERS Safety Report 25599637 (Version 1)
Quarter: 2025Q3

REPORT INFORMATION
  Report Type: Spontaneous
  Country: PR (occurrence: PR)
  Receive Date: 20250724
  Receipt Date: 20250724
  Transmission Date: 20251021
  Serious: No
  Sender: ROCHE
  Company Number: PR-ROCHE-10000338108

PATIENT
  Age: 68 Year
  Sex: Female
  Weight: 61.23 kg

DRUGS (15)
  1. KADCYLA [Suspect]
     Active Substance: ADO-TRASTUZUMAB EMTANSINE
     Indication: Breast cancer recurrent
     Route: 042
     Dates: start: 20240719, end: 2024
  2. KADCYLA [Suspect]
     Active Substance: ADO-TRASTUZUMAB EMTANSINE
     Route: 042
     Dates: start: 202412, end: 20250416
  3. LEXAPRO [Concomitant]
     Active Substance: ESCITALOPRAM OXALATE
     Indication: Depression
     Dosage: STARTED BEFORE KADCYLA STARTED.
     Route: 048
  4. BUPROPION [Concomitant]
     Active Substance: BUPROPION
     Indication: Depression
     Dosage: STARTED BEFORE KADCYLA STARTED.
     Route: 048
  5. ADDERALL [Concomitant]
     Active Substance: AMPHETAMINE ASPARTATE\AMPHETAMINE SULFATE\DEXTROAMPHETAMINE SACCHARATE\DEXTROAMPHETAMINE SULFATE
     Indication: Attention deficit hyperactivity disorder
     Dosage: THIS DOSE WAS STARTED AFTER KADCYLA WAS STARTED.
     Route: 048
     Dates: start: 2025
  6. ADDERALL [Concomitant]
     Active Substance: AMPHETAMINE ASPARTATE\AMPHETAMINE SULFATE\DEXTROAMPHETAMINE SACCHARATE\DEXTROAMPHETAMINE SULFATE
     Dosage: THIS DOSE WAS STARTED BEFORE KADCYLA STARTED.
     Route: 048
     Dates: end: 2025
  7. NEURONTIN [Concomitant]
     Active Substance: GABAPENTIN
     Indication: Anxiety
     Dosage: STARTED BEFORE KADCYLA WAS STARTED; PRESCRIBED BY PSYCHIATRIST.
     Route: 048
  8. NEURONTIN [Concomitant]
     Active Substance: GABAPENTIN
     Indication: Panic attack
  9. ULTRACET [Concomitant]
     Active Substance: ACETAMINOPHEN\TRAMADOL HYDROCHLORIDE
     Indication: Sciatica
     Route: 048
     Dates: start: 2011
  10. PROMETHAZINE [Concomitant]
     Active Substance: PROMETHAZINE HYDROCHLORIDE
     Indication: Nausea
     Dosage: EVERY MORNING; STARTED AFTER KADCYLA STARTED AND ENDED WHEN KADCYLA WAS ENDED.
     Route: 048
     Dates: start: 20240719, end: 20250416
  11. SEROQUEL [Concomitant]
     Active Substance: QUETIAPINE FUMARATE
     Dosage: STARTED BEFORE KADCYLA; TAKES AT NIGHT WITH CLONAZEPAM.
     Route: 048
  12. CLONAZEPAM [Concomitant]
     Active Substance: CLONAZEPAM
     Route: 048
  13. TRAMADOL [Concomitant]
     Active Substance: TRAMADOL
  14. ACETAMINOPHEN [Concomitant]
     Active Substance: ACETAMINOPHEN
  15. BENADRYL [Concomitant]
     Active Substance: DIPHENHYDRAMINE HYDROCHLORIDE
     Indication: Premedication

REACTIONS (11)
  - Skin wrinkling [Not Recovered/Not Resolved]
  - Skin discolouration [Not Recovered/Not Resolved]
  - Necrosis [Not Recovered/Not Resolved]
  - Skin necrosis [Not Recovered/Not Resolved]
  - Scar [Not Recovered/Not Resolved]
  - Brain fog [Recovered/Resolved]
  - Weight decreased [Not Recovered/Not Resolved]
  - Depression [Recovering/Resolving]
  - Fatigue [Unknown]
  - Asthenia [Unknown]
  - Nausea [Unknown]

NARRATIVE: CASE EVENT DATE: 20240719
